FAERS Safety Report 25054930 (Version 5)
Quarter: 2025Q3

REPORT INFORMATION
  Report Type: Spontaneous
  Country: EU (occurrence: EU)
  Receive Date: 20250308
  Receipt Date: 20250701
  Transmission Date: 20251020
  Serious: Yes (Other)
  Sender: ABBVIE
  Company Number: EU-ABBVIE-6166635

PATIENT
  Age: 66 Year

DRUGS (7)
  1. RINVOQ [Suspect]
     Active Substance: UPADACITINIB
     Indication: Dermatitis atopic
     Route: 048
     Dates: start: 20220407
  2. RINVOQ [Suspect]
     Active Substance: UPADACITINIB
     Indication: Dermatitis atopic
     Route: 048
  3. RINVOQ [Suspect]
     Active Substance: UPADACITINIB
     Indication: Dermatitis atopic
     Route: 048
  4. DESLORATADINE [Suspect]
     Active Substance: DESLORATADINE
     Indication: Dermatitis atopic
     Dosage: FOA: TABLET , QD
     Route: 065
  5. DESLORATADINE [Suspect]
     Active Substance: DESLORATADINE
     Indication: Dermatitis atopic
     Dosage: FOA: TABLET (0.5 DAY)
     Route: 065
     Dates: end: 202302
  6. DESLORATADINE [Suspect]
     Active Substance: DESLORATADINE
     Indication: Dermatitis atopic
     Route: 065
     Dates: start: 2023
  7. OMALIZUMAB [Suspect]
     Active Substance: OMALIZUMAB
     Indication: Dermatitis atopic
     Route: 065
     Dates: start: 2023, end: 202302

REACTIONS (11)
  - Loss of consciousness [Unknown]
  - Paraesthesia [Unknown]
  - Discomfort [Unknown]
  - Cardiovascular insufficiency [Unknown]
  - Cold urticaria [Unknown]
  - Drug ineffective [Unknown]
  - Malaise [Unknown]
  - Erythema [Unknown]
  - Cardiovascular disorder [Unknown]
  - Syncope [Unknown]
  - Dizziness [Unknown]

NARRATIVE: CASE EVENT DATE: 20220101
